FAERS Safety Report 24758760 (Version 1)
Quarter: 2024Q4

REPORT INFORMATION
  Report Type: Report from Study
  Country: GB (occurrence: GB)
  Receive Date: 20241220
  Receipt Date: 20241220
  Transmission Date: 20250114
  Serious: Yes (Other)
  Sender: ALEXION PHARMACEUTICALS
  Company Number: GB-ASTRAZENECA-202412GBR014899GB

PATIENT

DRUGS (2)
  1. LYNPARZA [Suspect]
     Active Substance: OLAPARIB
     Indication: Prostate cancer metastatic
     Dosage: 300 MILLIGRAM
  2. LYNPARZA [Suspect]
     Active Substance: OLAPARIB
     Dosage: 250 MILLIGRAM

REACTIONS (2)
  - Thrombocytopenia [Unknown]
  - Myelosuppression [Unknown]
